FAERS Safety Report 7673354-0 (Version None)
Quarter: 2011Q3

REPORT INFORMATION
  Report Type: 
  Country: None (occurrence: None)
  Receive Date: 20110810
  Receipt Date: 20110801
  Transmission Date: 20111222
  Serious: Yes (Hospitalization, Other)
  Sender: FDA-Public Use
  Company Number: FR-JNJFOC-20110105876

PATIENT
  Age: 36 Year
  Sex: Male

DRUGS (9)
  1. REMICADE [Suspect]
     Route: 042
     Dates: start: 20100611
  2. REMICADE [Suspect]
     Route: 042
     Dates: start: 20100708
  3. REMICADE [Suspect]
     Route: 042
     Dates: start: 20101029
  4. REMICADE [Suspect]
     Route: 042
     Dates: start: 20100527
  5. REMICADE [Suspect]
     Route: 042
     Dates: start: 20110115
  6. REMICADE [Suspect]
     Route: 042
  7. REMICADE [Suspect]
     Route: 042
     Dates: start: 20100902
  8. IMURAN [Suspect]
     Indication: CROHN'S DISEASE
     Route: 065
  9. REMICADE [Suspect]
     Indication: CROHN'S DISEASE
     Route: 042

REACTIONS (3)
  - NEUTROPENIA [None]
  - ECZEMA [None]
  - EAR INFECTION [None]
